FAERS Safety Report 25340514 (Version 8)
Quarter: 2025Q3

REPORT INFORMATION
  Report Type: Spontaneous
  Country: EU (occurrence: EU)
  Receive Date: 20250521
  Receipt Date: 20250723
  Transmission Date: 20251021
  Serious: Yes (Hospitalization, Other)
  Sender: CHIESI
  Company Number: EU-CHIESI-2025CHF03011

PATIENT
  Sex: Female
  Weight: 41 kg

DRUGS (3)
  1. LAMZEDE [Suspect]
     Active Substance: VELMANASE ALFA-TYCV
     Indication: Alpha-mannosidosis
     Route: 042
     Dates: start: 202312, end: 20250423
  2. LAMZEDE [Suspect]
     Active Substance: VELMANASE ALFA-TYCV
     Route: 042
     Dates: start: 20250528
  3. LAMZEDE [Suspect]
     Active Substance: VELMANASE ALFA-TYCV
     Dosage: 40 MILLIGRAM, QW
     Route: 042
     Dates: start: 20250716

REACTIONS (23)
  - Gastritis [Not Recovered/Not Resolved]
  - Gastrointestinal disorder [Not Recovered/Not Resolved]
  - Gastrointestinal polyp [Recovered/Resolved]
  - Cholelithiasis [Recovered/Resolved]
  - Haematochezia [Not Recovered/Not Resolved]
  - Gastric fistula [Recovered/Resolved]
  - Abdominal adhesions [Recovered/Resolved]
  - Pneumonitis [Recovered/Resolved]
  - Product dose omission issue [Recovered/Resolved]
  - Prescribed overdose [Not Recovered/Not Resolved]
  - C-reactive protein increased [Not Recovered/Not Resolved]
  - Haemoglobin decreased [Not Recovered/Not Resolved]
  - Pallor [Recovered/Resolved]
  - Blood iron decreased [Not Recovered/Not Resolved]
  - Inflammatory marker increased [Not Recovered/Not Resolved]
  - Feeling abnormal [Recovered/Resolved]
  - Diarrhoea [Not Recovered/Not Resolved]
  - Fatigue [Not Recovered/Not Resolved]
  - Vomiting [Not Recovered/Not Resolved]
  - Asthenia [Not Recovered/Not Resolved]
  - Abdominal pain [Recovered/Resolved]
  - Off label use [Recovered/Resolved]
  - Off label use [Not Recovered/Not Resolved]

NARRATIVE: CASE EVENT DATE: 20231201
